FAERS Safety Report 10003687 (Version 1)
Quarter: 2014Q1

REPORT INFORMATION
  Report Type: Spontaneous
  Country: US (occurrence: US)
  Receive Date: 20140312
  Receipt Date: 20140312
  Transmission Date: 20141002
  Serious: No
  Sender: FDA-Public Use
  Company Number: US-ABBVIE-13P-163-1084327-00

PATIENT
  Age: 51 Year
  Sex: Male

DRUGS (13)
  1. DEPAKOTE [Suspect]
     Indication: BIPOLAR DISORDER
     Route: 048
     Dates: start: 200801, end: 20100402
  2. DEPAKOTE [Suspect]
     Dates: start: 20100403, end: 20100415
  3. DEPAKOTE [Suspect]
  4. LEXAPRO [Suspect]
     Indication: DEPRESSION
     Route: 048
     Dates: start: 200806, end: 201107
  5. LEXAPRO [Suspect]
     Indication: OBSESSIVE-COMPULSIVE DISORDER
     Route: 048
     Dates: start: 201107
  6. LEXAPRO [Suspect]
     Route: 048
     Dates: end: 201112
  7. LEXAPRO [Suspect]
     Route: 048
     Dates: end: 201204
  8. SEROQUEL [Suspect]
     Indication: BIPOLAR DISORDER
     Route: 048
     Dates: start: 200805, end: 200908
  9. SEROQUEL [Suspect]
     Route: 048
     Dates: start: 200908, end: 201002
  10. SEROQUEL [Suspect]
     Route: 048
     Dates: start: 201002, end: 20100302
  11. SYNTHROID [Concomitant]
     Indication: HYPOTHYROIDISM
     Route: 048
  12. CLOMIPRAMINE [Concomitant]
     Indication: OBSESSIVE-COMPULSIVE DISORDER
     Dates: start: 2012
  13. METOPROLOL [Concomitant]
     Indication: HYPERTENSION

REACTIONS (3)
  - Somnolence [Recovered/Resolved]
  - Trismus [Recovered/Resolved]
  - Fatigue [Unknown]
